FAERS Safety Report 11112397 (Version 1)
Quarter: 2015Q2

REPORT INFORMATION
  Report Type: Spontaneous
  Country: US (occurrence: None)
  Receive Date: 20150513
  Receipt Date: 20150513
  Transmission Date: 20150821
  Serious: Yes (Other)
  Sender: FDA-Public Use
  Company Number: None

PATIENT
  Age: 27 Year
  Sex: Female
  Weight: 47.17 kg

DRUGS (3)
  1. LAMOTRIGINE 25MG [Suspect]
     Active Substance: LAMOTRIGINE
     Indication: BIPOLAR II DISORDER
     Dosage: 1 PILL
     Route: 048
     Dates: start: 20150331, end: 20150421
  2. FISH OIL [Concomitant]
     Active Substance: FISH OIL
  3. COQ10 [Concomitant]
     Active Substance: UBIDECARENONE

REACTIONS (26)
  - Impaired work ability [None]
  - Premenstrual cramps [None]
  - Confusional state [None]
  - Acne cystic [None]
  - Neutrophil count abnormal [None]
  - Activities of daily living impaired [None]
  - Memory impairment [None]
  - Depression [None]
  - Myalgia [None]
  - Rhinorrhoea [None]
  - Pain [None]
  - Fatigue [None]
  - Nasal disorder [None]
  - Appetite disorder [None]
  - Parosmia [None]
  - Chest pain [None]
  - Low density lipoprotein increased [None]
  - Asthenia [None]
  - Irritability [None]
  - Hypophagia [None]
  - Menstruation delayed [None]
  - Smear cervix abnormal [None]
  - Aggression [None]
  - Initial insomnia [None]
  - Menorrhagia [None]
  - Thirst [None]

NARRATIVE: CASE EVENT DATE: 20150420
